FAERS Safety Report 9424400 (Version 1)
Quarter: 2013Q3

REPORT INFORMATION
  Report Type: Spontaneous
  Country: JP (occurrence: JP)
  Receive Date: 20130729
  Receipt Date: 20130729
  Transmission Date: 20140515
  Serious: Yes (Hospitalization, Disabling)
  Sender: FDA-Public Use
  Company Number: JP-JNJFOC-20130611052

PATIENT
  Age: 75 Year
  Sex: Male
  Weight: 51 kg

DRUGS (11)
  1. XARELTO [Suspect]
     Indication: CEREBROVASCULAR ACCIDENT PROPHYLAXIS
     Route: 048
     Dates: start: 20130701
  2. XARELTO [Suspect]
     Indication: CEREBROVASCULAR ACCIDENT PROPHYLAXIS
     Route: 048
     Dates: start: 20130613, end: 20130630
  3. XARELTO [Suspect]
     Indication: CEREBROVASCULAR ACCIDENT PROPHYLAXIS
     Route: 048
     Dates: start: 20130606, end: 20130610
  4. XARELTO [Suspect]
     Indication: ATRIAL FIBRILLATION
     Route: 048
     Dates: start: 20130701
  5. XARELTO [Suspect]
     Indication: ATRIAL FIBRILLATION
     Route: 048
     Dates: start: 20130613, end: 20130630
  6. XARELTO [Suspect]
     Indication: ATRIAL FIBRILLATION
     Route: 048
     Dates: start: 20130606, end: 20130610
  7. HEPARIN SODIUM [Suspect]
     Indication: THROMBOSIS PROPHYLAXIS
     Route: 042
     Dates: start: 20130525, end: 20130605
  8. LASIX [Concomitant]
     Indication: CARDIAC FAILURE
     Route: 050
     Dates: start: 20130607
  9. SINGULAIR [Concomitant]
     Indication: ASTHMA
     Route: 050
     Dates: start: 20130604
  10. HOKUNALIN [Concomitant]
     Indication: ASTHMA
     Route: 062
     Dates: start: 20130601
  11. VASOLAN [Concomitant]
     Indication: TACHYCARDIA
     Route: 050
     Dates: start: 20130604

REACTIONS (2)
  - Cerebral infarction [Not Recovered/Not Resolved]
  - Haemorrhagic infarction [Recovered/Resolved with Sequelae]
